FAERS Safety Report 8879811 (Version 1)
Quarter: 2012Q4

REPORT INFORMATION
  Report Type: 
  Country: US (occurrence: US)
  Receive Date: 20121101
  Receipt Date: 20121101
  Transmission Date: 20130627
  Serious: Yes (Hospitalization)
  Sender: FDA-Public Use
  Company Number: US-UCBSA-069823

PATIENT
  Sex: Male

DRUGS (4)
  1. KEPPRA [Suspect]
  2. LATUDA [Suspect]
     Dosage: DOSE:160 MG SINCE 1 YEAR
     Route: 048
  3. CLOZARIL [Suspect]
     Dosage: UNKNOWN DOSE
  4. CLOZARIL [Suspect]
     Dosage: TAPERING DOSE

REACTIONS (3)
  - Psychiatric decompensation [Unknown]
  - Withdrawal syndrome [Unknown]
  - Treatment noncompliance [Unknown]
